FAERS Safety Report 17889733 (Version 1)
Quarter: 2020Q2

REPORT INFORMATION
  Report Type: Spontaneous
  Country: CZ (occurrence: CZ)
  Receive Date: 20200612
  Receipt Date: 20200612
  Transmission Date: 20200714
  Serious: Yes (Life-Threatening, Hospitalization)
  Sender: FDA-Public Use
  Company Number: CZ-009507513-2006CZE002320

PATIENT
  Age: 77 Year
  Sex: Male
  Weight: 94 kg

DRUGS (11)
  1. NAKOM [Concomitant]
     Active Substance: CARBIDOPA\LEVODOPA
     Indication: PARKINSONISM
     Dosage: 100/25 MG TBL., 1-1-0-1
  2. AGEN [Concomitant]
     Active Substance: AMLODIPINE BESYLATE
     Dosage: TBL. 0-0-0-1/2
  3. TIAPRIDAL [Concomitant]
     Active Substance: TIAPRIDE HYDROCHLORIDE
     Dosage: 0-1-0-0
  4. FURON [Concomitant]
     Active Substance: FUROSEMIDE
     Dosage: 0-0-0-1/2
     Route: 048
  5. ROSUMOP [Suspect]
     Active Substance: ROSUVASTATIN CALCIUM
     Indication: DYSLIPIDAEMIA
     Dosage: 40 MILLIGRAM, QD
     Route: 048
     Dates: end: 20200504
  6. STILNOX [Concomitant]
     Active Substance: ZOLPIDEM TARTRATE
     Indication: INSOMNIA
     Dosage: 1/2 OF TABLET FOR INSOMNIA
     Route: 048
  7. ROCALTROL [Concomitant]
     Active Substance: CALCITRIOL
     Dosage: MONDAY AND FRIDAY
  8. ANOPYRIN [Concomitant]
     Active Substance: ASPIRIN
     Dosage: 1-0-0-0
     Route: 048
  9. EZETROL [Suspect]
     Active Substance: EZETIMIBE
     Indication: DYSLIPIDAEMIA
     Dosage: 0-1-0-0
     Route: 048
     Dates: end: 20200504
  10. CORYOL [Concomitant]
     Dosage: 6.25 MILLIGRAM 0-1/2-0-1/2
     Route: 048
  11. DOGMATIL [Concomitant]
     Active Substance: SULPIRIDE
     Dates: end: 202003

REACTIONS (3)
  - Rhabdomyolysis [Recovering/Resolving]
  - Myopathy [Recovering/Resolving]
  - Acute kidney injury [Recovering/Resolving]

NARRATIVE: CASE EVENT DATE: 20200505
